FAERS Safety Report 7501362-9 (Version None)
Quarter: 2011Q2

REPORT INFORMATION
  Report Type: 
  Country: None (occurrence: None)
  Receive Date: 20110524
  Receipt Date: 20110520
  Transmission Date: 20111010
  Serious: Yes (Other)
  Sender: FDA-Public Use
  Company Number: CHPA2011US06816

PATIENT
  Age: 57 Year
  Sex: Male

DRUGS (3)
  1. PREVACID 24 HR [Suspect]
     Dosage: 30 MG, QD
     Route: 048
     Dates: start: 20101201
  2. AMLODIPINE [Concomitant]
     Indication: HYPERTENSION
     Route: 048
  3. PREVACID 24 HR [Suspect]
     Indication: GASTRITIS
     Dosage: 15 MG, QD
     Route: 048
     Dates: start: 20110518

REACTIONS (8)
  - ERYTHEMA [None]
  - ABDOMINAL DISCOMFORT [None]
  - INCORRECT DRUG ADMINISTRATION DURATION [None]
  - CELLULITIS [None]
  - ARTHROPOD BITE [None]
  - OEDEMA PERIPHERAL [None]
  - OFF LABEL USE [None]
  - OVERDOSE [None]
